FAERS Safety Report 8477429-8 (Version None)
Quarter: 2012Q2

REPORT INFORMATION
  Report Type: 
  Country: None (occurrence: None)
  Receive Date: 20120629
  Receipt Date: 20120625
  Transmission Date: 20120825
  Serious: Yes (Death, Hospitalization, Other)
  Sender: FDA-Public Use
  Company Number: PHHY2010JP51294

PATIENT
  Age: 61 Year
  Sex: Female

DRUGS (3)
  1. CYCLOSPORINE [Suspect]
     Indication: APLASTIC ANAEMIA
     Dosage: 200 MG, UNK
     Route: 048
  2. DEXAMETHASONE [Concomitant]
     Dosage: 40 MG, UNK
  3. PREDNISOLONE [Concomitant]
     Dosage: 30 MG, UNK
     Route: 048

REACTIONS (10)
  - PELVIC ABSCESS [None]
  - ABDOMINAL PAIN [None]
  - PLASMACYTOSIS [None]
  - WHITE BLOOD CELL COUNT INCREASED [None]
  - PYREXIA [None]
  - SQUAMOUS CELL CARCINOMA [None]
  - FEBRILE NEUTROPENIA [None]
  - PLASMA CELLS INCREASED [None]
  - DRUG ERUPTION [None]
  - BLOOD DISORDER [None]
